FAERS Safety Report 23543297 (Version 1)
Quarter: 2024Q1

REPORT INFORMATION
  Report Type: Spontaneous
  Country: US (occurrence: US)
  Receive Date: 20240220
  Receipt Date: 20240220
  Transmission Date: 20240409
  Serious: No
  Sender: FDA-Public Use
  Company Number: US-SA-SAC20240212001426

PATIENT
  Age: 60 Year
  Sex: Male

DRUGS (10)
  1. DUPIXENT [Suspect]
     Active Substance: DUPILUMAB
     Indication: Chronic sinusitis
     Dosage: 300 MG, QOW
     Route: 058
     Dates: start: 20231206
  2. DUPIXENT [Suspect]
     Active Substance: DUPILUMAB
     Indication: Nasal polyps
  3. VITAMIN B [Concomitant]
     Active Substance: VITAMIN B
  4. PREDNISONE [Concomitant]
     Active Substance: PREDNISONE
  5. TACROLIMUS [Concomitant]
     Active Substance: TACROLIMUS
  6. IRBESARTAN [Concomitant]
     Active Substance: IRBESARTAN
  7. BUDESONIDE [Concomitant]
     Active Substance: BUDESONIDE
  8. MYCOPHENOLIC ACID [Concomitant]
     Active Substance: MYCOPHENOLIC ACID
  9. SPIRIVA [Concomitant]
     Active Substance: TIOTROPIUM BROMIDE MONOHYDRATE
  10. METOPROLOL [Concomitant]
     Active Substance: METOPROLOL

REACTIONS (3)
  - Asthma [Unknown]
  - Hyposmia [Unknown]
  - Therapeutic product effect decreased [Unknown]

NARRATIVE: CASE EVENT DATE: 20240101
